FAERS Safety Report 20930738 (Version 3)
Quarter: 2022Q2

REPORT INFORMATION
  Report Type: Report from Study
  Country: AR (occurrence: AR)
  Receive Date: 20220608
  Receipt Date: 20220629
  Transmission Date: 20220720
  Serious: Yes (Hospitalization, Other)
  Sender: FDA-Public Use
  Company Number: AR-TAKEDA-2022TUS036712

PATIENT
  Age: 11 Year
  Sex: Male
  Weight: 28 kg

DRUGS (11)
  1. TEDUGLUTIDE [Suspect]
     Active Substance: TEDUGLUTIDE
     Indication: Short-bowel syndrome
     Dosage: 0.05 MILLIGRAM/KILOGRAM, QD
     Route: 058
     Dates: start: 20210909
  2. TEDUGLUTIDE [Suspect]
     Active Substance: TEDUGLUTIDE
     Indication: Short-bowel syndrome
     Dosage: 0.05 MILLIGRAM/KILOGRAM, QD
     Route: 058
     Dates: start: 20210909
  3. TEDUGLUTIDE [Suspect]
     Active Substance: TEDUGLUTIDE
     Indication: Short-bowel syndrome
     Dosage: 0.05 MILLIGRAM/KILOGRAM, QD
     Route: 058
     Dates: start: 20210909
  4. TEDUGLUTIDE [Suspect]
     Active Substance: TEDUGLUTIDE
     Indication: Short-bowel syndrome
     Dosage: 0.05 MILLIGRAM/KILOGRAM, QD
     Route: 058
     Dates: start: 20210909
  5. TEDUGLUTIDE [Suspect]
     Active Substance: TEDUGLUTIDE
     Dosage: 0.05 MILLIGRAM/KILOGRAM
     Route: 058
     Dates: start: 20210909
  6. TEDUGLUTIDE [Suspect]
     Active Substance: TEDUGLUTIDE
     Dosage: 0.05 MILLIGRAM/KILOGRAM
     Route: 058
     Dates: start: 20210909
  7. TEDUGLUTIDE [Suspect]
     Active Substance: TEDUGLUTIDE
     Dosage: 0.05 MILLIGRAM/KILOGRAM
     Route: 058
     Dates: start: 20210909
  8. TEDUGLUTIDE [Suspect]
     Active Substance: TEDUGLUTIDE
     Dosage: 0.05 MILLIGRAM/KILOGRAM
     Route: 058
     Dates: start: 20210909
  9. ENOXAPARIN [Concomitant]
     Active Substance: ENOXAPARIN
     Dosage: 20 MILLIGRAM, QD
     Route: 058
  10. VITAMIN D2 [Concomitant]
     Active Substance: ERGOCALCIFEROL
     Dosage: 4800 INTERNATIONAL UNIT, QD
     Route: 065
  11. IRON POLYMALTOSE [Concomitant]
     Active Substance: IRON POLYMALTOSE
     Dosage: 50 MILLIGRAM, QD

REACTIONS (9)
  - Device related infection [Recovered/Resolved]
  - Enterobacter infection [Unknown]
  - Adverse event [Unknown]
  - Cerebrovascular accident [Unknown]
  - Vascular device occlusion [Recovered/Resolved]
  - Abdominal pain [Recovered/Resolved]
  - Pyrexia [Recovered/Resolved]
  - Poor venous access [Unknown]
  - Culture positive [Unknown]

NARRATIVE: CASE EVENT DATE: 20211223
